FAERS Safety Report 17899923 (Version 1)
Quarter: 2020Q2

REPORT INFORMATION
  Report Type: Report from Study
  Country: BR (occurrence: BR)
  Receive Date: 20200616
  Receipt Date: 20200616
  Transmission Date: 20200714
  Serious: Yes (Death, Hospitalization)
  Sender: FDA-Public Use
  Company Number: NVSC2020BR166179

PATIENT
  Age: 66 Year
  Sex: Female

DRUGS (1)
  1. VOTRIENT [Suspect]
     Active Substance: PAZOPANIB HYDROCHLORIDE
     Indication: METASTATIC RENAL CELL CARCINOMA
     Dosage: 400 MG (2 TABLET PER DAY)
     Route: 065
     Dates: start: 20200422, end: 20200603

REACTIONS (9)
  - Fatigue [Unknown]
  - Nausea [Unknown]
  - Metastatic renal cell carcinoma [Fatal]
  - Feeling abnormal [Unknown]
  - Asthenia [Unknown]
  - Inappropriate schedule of product administration [Unknown]
  - Feeding disorder [Unknown]
  - Pneumonitis [Fatal]
  - Vomiting [Unknown]

NARRATIVE: CASE EVENT DATE: 202005
